FAERS Safety Report 6256163-9 (Version None)
Quarter: 2009Q3

REPORT INFORMATION
  Report Type: 
  Country: None (occurrence: None)
  Receive Date: 20090706
  Receipt Date: 20090623
  Transmission Date: 20100115
  Serious: Yes (Other)
  Sender: FDA-Public Use
  Company Number: PHHY2009BR25818

PATIENT
  Age: 66 Year
  Sex: Female

DRUGS (9)
  1. FORASEQ [Suspect]
     Indication: ASTHMA
     Dosage: EVERY 12 HOURS
     Dates: start: 20070101
  2. FORASEQ [Suspect]
     Dosage: UNK
     Dates: start: 20071001
  3. FORASEQ [Suspect]
     Dosage: UNK
     Dates: start: 20090623
  4. OMEPRAZOLE [Concomitant]
     Dosage: 1 DF, QD
  5. RABEPRAZOLE SODIUM [Concomitant]
     Dosage: 1 DF FASTING
     Route: 048
     Dates: start: 20090601
  6. ALPRAZOLAM [Concomitant]
     Indication: ANXIETY
     Dosage: 1 DF AT NIGHT
     Route: 048
     Dates: start: 20090601
  7. PRELONE [Concomitant]
     Indication: ASTHMA
     Dosage: 1 DF, QD
  8. DRUG THERAPY NOS [Concomitant]
     Indication: NEOPLASM MALIGNANT
     Dosage: 3 TO 5 TIMES PER WEEK
     Route: 048
     Dates: start: 20090201
  9. DRUG THERAPY NOS [Concomitant]
     Indication: GASTRITIS

REACTIONS (8)
  - ASTHENIA [None]
  - DYSPNOEA [None]
  - GASTRIC OPERATION [None]
  - GASTROINTESTINAL TRACT ADENOMA [None]
  - INTESTINAL POLYP [None]
  - INTESTINAL RESECTION [None]
  - RESPIRATORY FAILURE [None]
  - TACHYCARDIA [None]
